FAERS Safety Report 4545783-5 (Version None)
Quarter: 2005Q1

REPORT INFORMATION
  Report Type: 
  Country: None (occurrence: None)
  Receive Date: 20050105
  Receipt Date: 20050105
  Transmission Date: 20050727
  Serious: Yes (Other)
  Sender: FDA-Public Use
  Company Number: None

PATIENT
  Age: 74 Year
  Sex: Male

DRUGS (2)
  1. AUGMENTIN '500' [Suspect]
     Dosage: TABLET
  2. AUGMENTIN '875' [Suspect]
     Dosage: TABLET

REACTIONS (2)
  - DIARRHOEA [None]
  - MEDICATION ERROR [None]
